FAERS Safety Report 4600994-5 (Version None)
Quarter: 2005Q1

REPORT INFORMATION
  Report Type: 
  Country: None (occurrence: None)
  Receive Date: 20050307
  Receipt Date: 20050307
  Transmission Date: 20050727
  Serious: Yes (Other)
  Sender: FDA-Public Use
  Company Number: None

PATIENT
  Age: 56 Year
  Sex: Male
  Weight: 67.1324 kg

DRUGS (11)
  1. TOPOTECAN [Suspect]
     Indication: RENAL CANCER METASTATIC
     Dosage: TOPOTECAN 3.5MG IV QWK X 3
     Route: 042
     Dates: start: 20050216
  2. DOXIL [Suspect]
     Dosage: DOXIL 70MG IV EVERY 4 WKS
     Route: 042
     Dates: start: 20050216
  3. DILAUDID [Concomitant]
  4. LEVAQUIN [Concomitant]
  5. MEPHYTON [Concomitant]
  6. FOLATE [Concomitant]
  7. IMMPRON XL [Concomitant]
  8. REMERON [Concomitant]
  9. SPIRONOLACTONE [Concomitant]
  10. LACTOLOSE [Concomitant]
  11. M.V.I. [Concomitant]

REACTIONS (1)
  - NEUTROPHIL COUNT DECREASED [None]
